FAERS Safety Report 19880778 (Version 1)
Quarter: 2021Q3

REPORT INFORMATION
  Report Type: Report from Study
  Country: GB (occurrence: GB)
  Receive Date: 20210924
  Receipt Date: 20210924
  Transmission Date: 20211014
  Serious: Yes (Other)
  Sender: FDA-Public Use
  Company Number: GB-GLAXOSMITHKLINE-GB2021GSK193634

PATIENT

DRUGS (11)
  1. RALTEGRAVIR. [Suspect]
     Active Substance: RALTEGRAVIR
     Dosage: UNK
     Dates: start: 200809
  2. EMTRICITABINE + TENOFOVIR [Suspect]
     Active Substance: EMTRICITABINE\TENOFOVIR
     Indication: HIV INFECTION CDC CATEGORY B
     Dosage: UNK
     Dates: start: 200809
  3. LAMIVUDINE. [Suspect]
     Active Substance: LAMIVUDINE
     Dosage: UNK
     Dates: start: 200802, end: 2008
  4. DARUNAVIR + RITONAVIR [Suspect]
     Active Substance: DARUNAVIR\RITONAVIR
     Indication: HIV INFECTION CDC CATEGORY B
     Dosage: UNK
     Dates: start: 200709, end: 200802
  5. DARUNAVIR + RITONAVIR [Suspect]
     Active Substance: DARUNAVIR\RITONAVIR
     Dosage: UNK
     Dates: start: 200809
  6. RALTEGRAVIR. [Suspect]
     Active Substance: RALTEGRAVIR
     Indication: HIV INFECTION CDC CATEGORY B
     Dosage: 600 MG, 1D
     Dates: start: 200709, end: 200802
  7. LAMIVUDINE. [Suspect]
     Active Substance: LAMIVUDINE
     Indication: HIV INFECTION CDC CATEGORY B
     Dosage: UNK
  8. TENOFOVIR DISOPROXIL FUMARATE. [Suspect]
     Active Substance: TENOFOVIR DISOPROXIL FUMARATE
     Indication: HIV INFECTION CDC CATEGORY B
     Dosage: UNK
     Dates: start: 200802, end: 2008
  9. ETRAVIRINE [Suspect]
     Active Substance: ETRAVIRINE
     Dosage: UNK
     Dates: start: 200809
  10. LOPINAVIR+RITONAVIR [Suspect]
     Active Substance: LOPINAVIR\RITONAVIR
     Indication: HIV INFECTION CDC CATEGORY B
     Dosage: UNK
  11. ETRAVIRINE [Suspect]
     Active Substance: ETRAVIRINE
     Indication: HIV INFECTION CDC CATEGORY B
     Dosage: UNK
     Dates: start: 200709, end: 200802

REACTIONS (5)
  - Viral mutation identified [Unknown]
  - Treatment failure [Unknown]
  - Pathogen resistance [Unknown]
  - Virologic failure [Unknown]
  - Blood HIV RNA increased [Unknown]
